FAERS Safety Report 4996486-4 (Version None)
Quarter: 2006Q2

REPORT INFORMATION
  Report Type: 
  Country: None (occurrence: None)
  Receive Date: 20060505
  Receipt Date: 20060425
  Transmission Date: 20061013
  Serious: Yes (Life-Threatening, Hospitalization)
  Sender: FDA-Public Use
  Company Number: HQWYE465422MAR06

PATIENT
  Age: 69 Year
  Sex: Female

DRUGS (11)
  1. MYLOTARG [Suspect]
     Indication: ACUTE MYELOID LEUKAEMIA
     Dosage: 9 MG/M^2 1X PER 1 DAY INTRAVENOUS DRIP
     Route: 041
     Dates: start: 20051220, end: 20051220
  2. ACICLOVIR (ACICILOVIR, ) [Suspect]
     Indication: HERPES ZOSTER
     Dosage: 600 MG/DAY INTRAVENOUS DRIP
     Route: 041
     Dates: start: 20051230, end: 20060106
  3. ETOPOSIDE [Suspect]
     Indication: ACUTE MYELOID LEUKAEMIA
     Dosage: INTRAVENOUS
     Route: 042
     Dates: start: 20060109, end: 20060113
  4. MEROPEN (MEROPENEM) [Concomitant]
  5. LEVOFLOXACIN [Concomitant]
  6. DIFLUCAN [Concomitant]
  7. FAMOTIDINE [Concomitant]
  8. PREDNISOLONE [Concomitant]
  9. MAGNESIUM OXIDE (MAGNESIUM OXIDE) [Concomitant]
  10. BROTIZOLAM (BROTIZOLAM) [Concomitant]
  11. VALTREX [Concomitant]

REACTIONS (10)
  - ANAEMIA [None]
  - DISEASE PROGRESSION [None]
  - DISSEMINATED INTRAVASCULAR COAGULATION [None]
  - DRUG INEFFECTIVE [None]
  - FEBRILE NEUTROPENIA [None]
  - HERPES ZOSTER [None]
  - HYPOCALCAEMIA [None]
  - HYPOKALAEMIA [None]
  - RENAL IMPAIRMENT [None]
  - WHITE BLOOD CELL COUNT DECREASED [None]
